FAERS Safety Report 7387379-6 (Version None)
Quarter: 2011Q1

REPORT INFORMATION
  Report Type: 
  Country: None (occurrence: None)
  Receive Date: 20110331
  Receipt Date: 20110321
  Transmission Date: 20110831
  Serious: Yes (Disabling, Other)
  Sender: FDA-Public Use
  Company Number: PHEH2009US13274

PATIENT
  Sex: Female

DRUGS (11)
  1. TRAZODONE [Concomitant]
     Dosage: 100 MG, QD
  2. PAXIL [Concomitant]
  3. RECLAST [Suspect]
     Dosage: UNK
     Dates: start: 20090701
  4. RECLAST [Suspect]
     Dosage: 5 MG, ONCE/SINGLE
     Route: 042
     Dates: start: 20081201
  5. PAROXETINE HCL [Concomitant]
     Dosage: 20 MG, QD
  6. KLONOPIN [Concomitant]
     Dosage: 2 MG, BID
  7. PRILOSEC [Concomitant]
  8. MULTIVITAMIN [Concomitant]
     Dosage: UNK
  9. ZOCOR [Concomitant]
     Dosage: 40 MG, QD
  10. PROTONIX [Concomitant]
     Dosage: UNK
  11. CALCIUM WITH VITAMIN D [Concomitant]
     Dosage: UNK

REACTIONS (9)
  - DISABILITY [None]
  - FALL [None]
  - INJURY [None]
  - BEDRIDDEN [None]
  - WALKING AID USER [None]
  - FEMUR FRACTURE [None]
  - OSTEONECROSIS OF JAW [None]
  - MYALGIA [None]
  - ARTHRALGIA [None]
